FAERS Safety Report 18297227 (Version 1)
Quarter: 2020Q3

REPORT INFORMATION
  Report Type: Spontaneous
  Country: JP (occurrence: JP)
  Receive Date: 20200923
  Receipt Date: 20200923
  Transmission Date: 20201103
  Serious: Yes (Other)
  Sender: FDA-Public Use
  Company Number: JP-AMGEN-JPNNI2020025895

PATIENT
  Age: 65 Year
  Sex: Female

DRUGS (2)
  1. BLINCYTO [Suspect]
     Active Substance: BLINATUMOMAB
     Indication: PRODUCT USED FOR UNKNOWN INDICATION
     Dosage: 9 MICROGRAM, QD
     Route: 042
     Dates: start: 20200206
  2. BLINCYTO [Suspect]
     Active Substance: BLINATUMOMAB
     Dosage: 28 MICROGRAM, QD
     Route: 042
     Dates: start: 20200213

REACTIONS (3)
  - Myelosuppression [Recovering/Resolving]
  - B-lymphocyte count abnormal [Unknown]
  - Cytokine release syndrome [Recovered/Resolved]
